FAERS Safety Report 12417609 (Version 1)
Quarter: 2016Q2

REPORT INFORMATION
  Report Type: Spontaneous
  Country: HU (occurrence: HU)
  Receive Date: 20160530
  Receipt Date: 20160530
  Transmission Date: 20160815
  Serious: Yes (Other)
  Sender: FDA-Public Use
  Company Number: PHHY2016HU069686

PATIENT
  Age: 48 Year
  Sex: Male

DRUGS (6)
  1. REGORAFENIB [Suspect]
     Active Substance: REGORAFENIB
     Indication: GASTROINTESTINAL STROMAL TUMOUR
     Route: 065
     Dates: start: 201501, end: 201512
  2. IMATINIB [Suspect]
     Active Substance: IMATINIB
     Dosage: 400 MG, QD (1 X400 MG)
     Route: 065
  3. IMATINIB [Suspect]
     Active Substance: IMATINIB
     Indication: GASTROINTESTINAL STROMAL TUMOUR
     Dosage: 200 MG, QD
     Route: 065
     Dates: end: 200511
  4. IMATINIB [Suspect]
     Active Substance: IMATINIB
     Dosage: 400 MG, BID (2 X400 MG)
     Route: 065
  5. SUNITINIB [Suspect]
     Active Substance: SUNITINIB
     Indication: GASTROINTESTINAL STROMAL TUMOUR
     Dosage: 50 MG, FOR 4/2 WEEKS
     Route: 065
     Dates: start: 201401, end: 201501
  6. IMATINIB [Suspect]
     Active Substance: IMATINIB
     Dosage: 400 MG, QD (PD)
     Route: 065
     Dates: start: 201602

REACTIONS (9)
  - Stomatitis [Unknown]
  - Retroperitoneal neoplasm [Unknown]
  - Recurrent cancer [Unknown]
  - Malignant neoplasm progression [Unknown]
  - Ischaemic stroke [Recovered/Resolved]
  - Weight decreased [Unknown]
  - Hepatic lesion [Unknown]
  - Gastrointestinal stromal tumour [Unknown]
  - Diarrhoea [Unknown]

NARRATIVE: CASE EVENT DATE: 200701
